FAERS Safety Report 10174634 (Version 1)
Quarter: 2014Q2

REPORT INFORMATION
  Report Type: Spontaneous
  Country: US (occurrence: US)
  Receive Date: 20140515
  Receipt Date: 20140515
  Transmission Date: 20141212
  Serious: Yes (Hospitalization)
  Sender: FDA-Public Use
  Company Number: US-GLAXOSMITHKLINE-A1072990A

PATIENT
  Age: 64 Year
  Sex: Female

DRUGS (3)
  1. ADVAIR [Suspect]
     Indication: ASTHMA
     Route: 055
     Dates: start: 2002
  2. ANTIBIOTIC (UNSPECIFIED) [Suspect]
     Indication: URINARY TRACT INFECTION
  3. STEROID [Concomitant]

REACTIONS (5)
  - Urinary tract infection [Unknown]
  - Blood sodium decreased [Unknown]
  - Anaphylactic reaction [Unknown]
  - Pharyngeal oedema [Unknown]
  - Drug hypersensitivity [Unknown]
